FAERS Safety Report 9725977 (Version 3)
Quarter: 2013Q4

REPORT INFORMATION
  Report Type: Report from Study
  Country: JP (occurrence: JP)
  Receive Date: 20131203
  Receipt Date: 20131227
  Transmission Date: 20140711
  Serious: Yes (Other)
  Sender: FDA-Public Use
  Company Number: JP-JNJFOC-20131117768

PATIENT
  Age: 1 Month
  Sex: Male

DRUGS (3)
  1. FINIBAX [Suspect]
     Indication: PYELONEPHRITIS
     Dosage: 40 MG/KG THREE TIMES DAILY
     Route: 041
     Dates: start: 20131009, end: 20131011
  2. SEFIROM [Suspect]
     Indication: PYELONEPHRITIS
     Dosage: 60 MG/KG TWICE DAILY
     Route: 065
     Dates: start: 20131009, end: 20131011
  3. SULBACTAM SODIUM/AMPICILLIN SODIUM [Concomitant]
     Indication: PYELONEPHRITIS
     Route: 065
     Dates: start: 20131011, end: 20131015

REACTIONS (1)
  - Rhabdomyolysis [Recovering/Resolving]
